FAERS Safety Report 11073737 (Version 1)
Quarter: 2015Q2

REPORT INFORMATION
  Report Type: Report from Study
  Country: US (occurrence: US)
  Receive Date: 20150428
  Receipt Date: 20150428
  Transmission Date: 20150821
  Serious: Yes (Hospitalization)
  Sender: FDA-Public Use
  Company Number: US-EXELIXIS-XL18415005370

PATIENT
  Age: 58 Year
  Sex: Male
  Weight: 68 kg

DRUGS (19)
  1. CALCIUM [Concomitant]
     Active Substance: CALCIUM
  2. TRAMADOL [Concomitant]
     Active Substance: TRAMADOL
  3. XL184 [Suspect]
     Active Substance: CABOZANTINIB
     Indication: RENAL CELL CARCINOMA
     Dosage: 60 MG, QD
     Route: 048
     Dates: start: 20140805, end: 20150407
  4. IBUPROFEN. [Concomitant]
     Active Substance: IBUPROFEN
  5. SUCRALFATE. [Concomitant]
     Active Substance: SUCRALFATE
  6. AMITRIPTYLINE [Concomitant]
     Active Substance: AMITRIPTYLINE
  7. SERTRALINE [Concomitant]
     Active Substance: SERTRALINE HYDROCHLORIDE
  8. MEGESTROL [Concomitant]
     Active Substance: MEGESTROL
  9. OXYCODONE [Concomitant]
     Active Substance: OXYCODONE
  10. PANTOPRAZOLE [Concomitant]
     Active Substance: PANTOPRAZOLE SODIUM
  11. TAMSULOSIN [Concomitant]
     Active Substance: TAMSULOSIN
  12. DULOXETINE [Concomitant]
     Active Substance: DULOXETINE
  13. ZOPIDEM [Concomitant]
  14. VITAMIN B12 [Concomitant]
     Active Substance: CYANOCOBALAMIN
  15. TUMS [Concomitant]
     Active Substance: CALCIUM CARBONATE
  16. MODAFINIL. [Concomitant]
     Active Substance: MODAFINIL
  17. ETODOLAC. [Concomitant]
     Active Substance: ETODOLAC
  18. D3 [Concomitant]
     Active Substance: 25-HYDROXYCHOLECALCIFEROL, 5-TRANS-
  19. MIRTAZAPINE. [Concomitant]
     Active Substance: MIRTAZAPINE

REACTIONS (2)
  - Fall [Recovering/Resolving]
  - Gastric haemorrhage [Recovering/Resolving]

NARRATIVE: CASE EVENT DATE: 20150408
